FAERS Safety Report 19967557 (Version 1)
Quarter: 2021Q4

REPORT INFORMATION
  Report Type: Spontaneous
  Country: US (occurrence: US)
  Receive Date: 20211019
  Receipt Date: 20211019
  Transmission Date: 20220303
  Serious: No
  Sender: FDA-Public Use
  Company Number: US-SA-SAC20211014000561

PATIENT
  Age: 68 Year
  Sex: Male

DRUGS (5)
  1. DUPIXENT [Suspect]
     Active Substance: DUPILUMAB
     Indication: Dermatitis atopic
     Dosage: 300 MG, QOW
     Route: 058
     Dates: start: 20200828
  2. IBUPROFEN [Concomitant]
     Active Substance: IBUPROFEN
  3. OSPHENA [Concomitant]
     Active Substance: OSPEMIFENE
  4. RESTASIS [Concomitant]
     Active Substance: CYCLOSPORINE
  5. PSEUDOEPHEDRINE [Concomitant]
     Active Substance: PSEUDOEPHEDRINE

REACTIONS (1)
  - Acne [Unknown]
